FAERS Safety Report 6927116-X (Version None)
Quarter: 2010Q3

REPORT INFORMATION
  Report Type: 
  Country: None (occurrence: None)
  Receive Date: 20100816
  Receipt Date: 20100804
  Transmission Date: 20110219
  Serious: No
  Sender: FDA-Public Use
  Company Number: US-ABBOTT-10P-163-0661452-00

PATIENT
  Sex: Female

DRUGS (4)
  1. SIMCOR [Suspect]
     Indication: FAMILIAL RISK FACTOR
     Dosage: 500/20MG DAILY AT BEDTIME
     Route: 048
     Dates: start: 20100501
  2. SIMCOR [Suspect]
     Indication: PREDISPOSITION TO DISEASE
  3. ASPIRIN [Concomitant]
     Indication: PRODUCT USED FOR UNKNOWN INDICATION
     Dosage: 81 MG DAILY AT BEDTIME
     Route: 048
  4. M.V.I. [Concomitant]
     Indication: PRODUCT USED FOR UNKNOWN INDICATION

REACTIONS (4)
  - ASTHENIA [None]
  - BACK PAIN [None]
  - FATIGUE [None]
  - FLUSHING [None]
